FAERS Safety Report 20530948 (Version 1)
Quarter: 2022Q1

REPORT INFORMATION
  Report Type: Spontaneous
  Country: HU (occurrence: HU)
  Receive Date: 20220301
  Receipt Date: 20220301
  Transmission Date: 20220423
  Serious: Yes (Other)
  Sender: FDA-Public Use
  Company Number: HU-002147023-NVSC2022HU007483

PATIENT
  Age: 18 Year
  Sex: Female

DRUGS (12)
  1. CISPLATIN [Suspect]
     Active Substance: CISPLATIN
     Indication: Metastases to lung
     Dosage: 120 MILLIGRAM/SQ. METER, QD (120 MG/M2, QD)
     Route: 042
  2. CISPLATIN [Suspect]
     Active Substance: CISPLATIN
     Indication: Metastases to liver
  3. CISPLATIN [Suspect]
     Active Substance: CISPLATIN
     Indication: Adrenal gland cancer
  4. DOXORUBICIN [Suspect]
     Active Substance: DOXORUBICIN
     Indication: Adrenal gland cancer
     Dosage: 60 MILLIGRAM/SQ. METER, QD (60 MG/M2, QD)
     Route: 042
  5. DOXORUBICIN [Suspect]
     Active Substance: DOXORUBICIN
     Indication: Metastases to liver
  6. DOXORUBICIN [Suspect]
     Active Substance: DOXORUBICIN
     Indication: Metastases to lung
  7. FLUOROURACIL [Suspect]
     Active Substance: FLUOROURACIL
     Indication: Adrenal gland cancer
     Dosage: 500 MILLIGRAM/SQ. METER, QD (500 MG/M2, QD)
     Route: 042
  8. FLUOROURACIL [Suspect]
     Active Substance: FLUOROURACIL
     Indication: Metastases to liver
  9. FLUOROURACIL [Suspect]
     Active Substance: FLUOROURACIL
     Indication: Metastases to lung
  10. MITOTANE [Concomitant]
     Active Substance: MITOTANE
     Indication: Metastases to liver
     Dosage: 2500 MILLIGRAM, QD (2500 MG, QD)
     Route: 065
  11. MITOTANE [Concomitant]
     Active Substance: MITOTANE
     Indication: Adrenal gland cancer
  12. MITOTANE [Concomitant]
     Active Substance: MITOTANE
     Indication: Metastases to lung

REACTIONS (4)
  - Adrenal insufficiency [Unknown]
  - Neuropsychiatric symptoms [Unknown]
  - Off label use [Unknown]
  - Product use in unapproved indication [Unknown]
